FAERS Safety Report 12154362 (Version 1)
Quarter: 2016Q1

REPORT INFORMATION
  Report Type: Spontaneous
  Country: US (occurrence: US)
  Receive Date: 20160307
  Receipt Date: 20160307
  Transmission Date: 20160526
  Serious: No
  Sender: FDA-Public Use
  Company Number: US-PFIZER INC-2016079255

PATIENT
  Age: 30 Year
  Sex: Male
  Weight: 90.72 kg

DRUGS (1)
  1. CHANTIX [Suspect]
     Active Substance: VARENICLINE TARTRATE
     Indication: SMOKING CESSATION THERAPY
     Dosage: UNK
     Dates: start: 201510, end: 201601

REACTIONS (2)
  - Genital infection fungal [Not Recovered/Not Resolved]
  - Skin odour abnormal [Unknown]

NARRATIVE: CASE EVENT DATE: 201511
